FAERS Safety Report 23488003 (Version 1)
Quarter: 2024Q1

REPORT INFORMATION
  Report Type: Spontaneous
  Country: US (occurrence: None)
  Receive Date: 20240206
  Receipt Date: 20240206
  Transmission Date: 20240409
  Serious: No
  Sender: FDA-Public Use
  Company Number: None

PATIENT
  Sex: Female

DRUGS (1)
  1. BEXAROTENE [Suspect]
     Active Substance: BEXAROTENE
     Indication: CD30 expression
     Dosage: FREQUENCY : DAILY;?
     Route: 048
     Dates: start: 201701

REACTIONS (1)
  - Hospitalisation [None]
